FAERS Safety Report 13109175 (Version 1)
Quarter: 2017Q1

REPORT INFORMATION
  Report Type: Spontaneous
  Country: US (occurrence: US)
  Receive Date: 20170112
  Receipt Date: 20170112
  Transmission Date: 20170428
  Serious: No
  Sender: FDA-Public Use
  Company Number: US-BAYER-2017-002702

PATIENT
  Age: 43 Year
  Sex: Female

DRUGS (1)
  1. SKYLA [Suspect]
     Active Substance: LEVONORGESTREL
     Indication: CONTRACEPTION
     Dosage: 14 MG, CONT
     Route: 015
     Dates: start: 201606, end: 20161011

REACTIONS (9)
  - Procedural pain [None]
  - Palpitations [None]
  - Anxiety [None]
  - Feeling abnormal [None]
  - Menorrhagia [None]
  - Haemorrhoids [None]
  - Hypoaesthesia [None]
  - Varicose vein [None]
  - Paraesthesia [None]

NARRATIVE: CASE EVENT DATE: 201610
